FAERS Safety Report 7391900-1 (Version None)
Quarter: 2011Q2

REPORT INFORMATION
  Report Type: 
  Country: None (occurrence: None)
  Receive Date: 20110404
  Receipt Date: 20110322
  Transmission Date: 20111010
  Serious: Yes (Hospitalization)
  Sender: FDA-Public Use
  Company Number: NL-MEDIMMUNE-MEDI-0013019

PATIENT
  Sex: Male

DRUGS (2)
  1. SYNAGIS [Suspect]
     Route: 030
     Dates: start: 20110322
  2. SYNAGIS [Suspect]
     Route: 030
     Dates: start: 20101005, end: 20110221

REACTIONS (4)
  - STRIDOR [None]
  - CONDITION AGGRAVATED [None]
  - ANGER [None]
  - OXYGEN SATURATION ABNORMAL [None]
